FAERS Safety Report 6308348-0 (Version None)
Quarter: 2009Q3

REPORT INFORMATION
  Report Type: 
  Country: None (occurrence: None)
  Receive Date: 20090813
  Receipt Date: 20090622
  Transmission Date: 20100115
  Serious: Yes (Hospitalization, Other)
  Sender: FDA-Public Use
  Company Number: US-PFIZER INC-2006131749

PATIENT
  Sex: Male
  Weight: 77.1 kg

DRUGS (11)
  1. LYRICA [Suspect]
     Indication: NEUROPATHY PERIPHERAL
     Dosage: 50 MG TWICE DAILY, 75 MG AT BEDTIME
     Route: 048
     Dates: start: 20060801
  2. LYRICA [Suspect]
     Route: 048
     Dates: start: 20070401
  3. NEURONTIN [Suspect]
     Indication: NEUROPATHY PERIPHERAL
     Route: 048
     Dates: start: 20040101
  4. TRILEPTAL [Suspect]
  5. ULTRAM [Concomitant]
  6. KLONOPIN [Concomitant]
  7. SALAGEN [Concomitant]
     Indication: DRY EYE
  8. PREDNISONE [Concomitant]
  9. CLONIDINE [Concomitant]
  10. MEPERGAN FORTIS [Concomitant]
  11. ZESTRIL [Concomitant]
     Dosage: UNK

REACTIONS (9)
  - DIZZINESS [None]
  - DRUG INEFFECTIVE [None]
  - EYE LASER SURGERY [None]
  - FALL [None]
  - NEPHROLITHIASIS [None]
  - NEUROPATHY PERIPHERAL [None]
  - PAIN IN EXTREMITY [None]
  - REHABILITATION THERAPY [None]
  - RESTLESSNESS [None]
